FAERS Safety Report 14494871 (Version 1)
Quarter: 2018Q1

REPORT INFORMATION
  Report Type: Spontaneous
  Country: US (occurrence: US)
  Receive Date: 20180206
  Receipt Date: 20180206
  Transmission Date: 20180509
  Serious: Yes (Hospitalization, Other)
  Sender: FDA-Public Use
  Company Number: US-MYLANLABS-2018M1007329

PATIENT
  Age: 75 Year
  Sex: Male

DRUGS (9)
  1. GABAPENTIN. [Interacting]
     Active Substance: GABAPENTIN
     Indication: ANALGESIC THERAPY
     Dosage: THREE TIMES A DAY
     Route: 061
  2. IMIPRAMINE [Interacting]
     Active Substance: IMIPRAMINE
     Indication: ANALGESIC THERAPY
     Dosage: THREE TIMES A DAY
     Route: 061
  3. ACETAMINOPHEN AND CODEINE [Interacting]
     Active Substance: ACETAMINOPHEN\CODEINE PHOSPHATE
     Indication: PAIN
     Dosage: PARACETAMOL 300MG/CODEINE 30MG, EVERY 4 HOURS AS NEEDED
     Route: 065
  4. KETAMINE [Suspect]
     Active Substance: KETAMINE
     Indication: ANALGESIC THERAPY
     Dosage: THREE TIMES A DAY
     Route: 061
  5. LIDOCAINE. [Interacting]
     Active Substance: LIDOCAINE
     Indication: ANALGESIC THERAPY
     Dosage: THREE TIMES A DAY
     Route: 061
  6. PRAVASTATIN. [Interacting]
     Active Substance: PRAVASTATIN
     Indication: PRODUCT USED FOR UNKNOWN INDICATION
     Dosage: NIGHTLY
     Route: 065
  7. MEFENAMIC ACID. [Interacting]
     Active Substance: MEFENAMIC ACID
     Indication: ANALGESIC THERAPY
     Dosage: THREE TIMES A DAY
     Route: 061
  8. CLONIDINE. [Interacting]
     Active Substance: CLONIDINE
     Indication: ANALGESIC THERAPY
     Dosage: THREE TIMES A DAY
     Route: 061
  9. TELMISARTAN. [Interacting]
     Active Substance: TELMISARTAN
     Indication: PRODUCT USED FOR UNKNOWN INDICATION
     Dosage: 40MG DAILY
     Route: 065

REACTIONS (3)
  - Delirium [Recovered/Resolved]
  - Mental status changes [Recovered/Resolved]
  - Drug interaction [Recovered/Resolved]
